FAERS Safety Report 6425475-8 (Version None)
Quarter: 2009Q4

REPORT INFORMATION
  Report Type: 
  Country: None (occurrence: None)
  Receive Date: 20091103
  Receipt Date: 20091026
  Transmission Date: 20100525
  Serious: Yes (Other)
  Sender: FDA-Public Use
  Company Number: BR-PFIZER INC-2009274060

PATIENT
  Sex: Male
  Weight: 78 kg

DRUGS (2)
  1. CELEBRA [Suspect]
     Indication: PAIN
     Dosage: 200 MG, 2X/DAY
     Route: 048
     Dates: start: 20090201, end: 20090101
  2. CELEBRA [Suspect]
     Indication: BURSITIS

REACTIONS (10)
  - BLOOD GLUCOSE DECREASED [None]
  - BURSITIS [None]
  - DRUG INEFFECTIVE FOR UNAPPROVED INDICATION [None]
  - DRUG PRESCRIBING ERROR [None]
  - FALL [None]
  - FLATULENCE [None]
  - LAZINESS [None]
  - LIMB INJURY [None]
  - SOMNOLENCE [None]
  - SPINAL DISORDER [None]
